FAERS Safety Report 9680843 (Version 1)
Quarter: 2013Q4

REPORT INFORMATION
  Report Type: Spontaneous
  Country: US (occurrence: None)
  Receive Date: 20131108
  Receipt Date: 20131108
  Transmission Date: 20140711
  Serious: Yes (Hospitalization)
  Sender: FDA-Public Use
  Company Number: None

PATIENT
  Age: 79 Year
  Sex: Female

DRUGS (17)
  1. AMBIEN [Suspect]
     Route: 048
     Dates: start: 20120813
  2. OSCAL [Concomitant]
  3. VD3 [Concomitant]
  4. CENTRUM [Concomitant]
  5. ASPIRIN [Concomitant]
  6. FOSAMAX [Concomitant]
  7. SERTRALINE [Concomitant]
  8. LOVASTATIN [Concomitant]
  9. LOSARTAN [Concomitant]
  10. LATANOPROST [Concomitant]
  11. AZOPT [Concomitant]
  12. MELATONIN [Concomitant]
  13. COL-RITE PEPTIC RELIEF [Concomitant]
  14. IBUPROFEN [Concomitant]
  15. ICAPS [Concomitant]
  16. GLUCOSAMINE [Concomitant]
  17. CONVALLARIA MAJALIS\CRATAEGUS LAEVIGATA LEAF\PROXYPHYLLINE [Concomitant]

REACTIONS (1)
  - Palpitations [None]
